FAERS Safety Report 23610860 (Version 3)
Quarter: 2024Q2

REPORT INFORMATION
  Report Type: Spontaneous
  Country: JP (occurrence: JP)
  Receive Date: 20240308
  Receipt Date: 20240401
  Transmission Date: 20240715
  Serious: Yes (Hospitalization, Other)
  Sender: FDA-Public Use
  Company Number: JP-UCBJ-CD202401889UCBPHAPROD

PATIENT
  Age: 2 Month

DRUGS (3)
  1. LEVETIRACETAM [Suspect]
     Active Substance: LEVETIRACETAM
     Indication: Partial seizures
     Dosage: 10 MILLIGRAM/KILOGRAM, 2X/DAY (BID) (20 MILLIGRAM/KILOGRAM PER DAY)
     Route: 048
  2. TRANSAMIN [Concomitant]
     Active Substance: TRANEXAMIC ACID
     Indication: Product used for unknown indication
     Dosage: UNK
  3. HERBALS [Concomitant]
     Active Substance: HERBALS
     Indication: Product used for unknown indication
     Dosage: UNK

REACTIONS (4)
  - Cerebral atrophy [Unknown]
  - Hemiplegia [Unknown]
  - Fluid retention [Unknown]
  - Off label use [Unknown]
